FAERS Safety Report 7097965-9 (Version None)
Quarter: 2010Q4

REPORT INFORMATION
  Report Type: 
  Country: None (occurrence: None)
  Receive Date: 20101104
  Receipt Date: 20101027
  Transmission Date: 20110411
  Serious: Yes (Other)
  Sender: FDA-Public Use
  Company Number: TAJPN-10-0584

PATIENT
  Age: 43 Year
  Sex: Female

DRUGS (5)
  1. ABRAXANE [Suspect]
     Indication: BREAST CANCER METASTATIC
     Dosage: 361.4 MG
     Dates: start: 20100928
  2. HERCEPTIN [Concomitant]
  3. ZOMETA [Concomitant]
  4. GABAPENTIN [Concomitant]
  5. PROTECADIN (LAFUTIDINE) [Concomitant]

REACTIONS (1)
  - OPTIC NERVE DISORDER [None]
